FAERS Safety Report 8499952-2 (Version None)
Quarter: 2012Q3

REPORT INFORMATION
  Report Type: 
  Country: None (occurrence: None)
  Receive Date: 20120710
  Receipt Date: 20120705
  Transmission Date: 20120928
  Serious: Yes (Hospitalization)
  Sender: FDA-Public Use
  Company Number: US-BAYER-2012-025367

PATIENT
  Age: 40 Year
  Sex: Female
  Weight: 49.977 kg

DRUGS (10)
  1. YAZ [Suspect]
     Indication: POLYCYSTIC OVARIES
     Dosage: UNK
     Dates: start: 20071001, end: 20090401
  2. YASMIN [Suspect]
     Dosage: UNK
     Dates: start: 20071001, end: 20090401
  3. ACETAMINOPHEN AND OXYCODONE HCL [Concomitant]
     Dosage: 7.5 MG, UNK
  4. OXYCONTIN [Concomitant]
     Dosage: 10 MG, UNK
  5. METHOCARBAMOL [Concomitant]
     Dosage: 500 MG, UNK
  6. ACETAMINOPHEN AND OXYCODONE HCL [Concomitant]
     Dosage: 325 MG, UNK
  7. MIRALAX [Concomitant]
  8. DROSPIRENONE AND ETHINYL ESTRADIOL [Suspect]
     Dosage: UNK
     Dates: start: 20071001, end: 20090401
  9. SENOKOT [Concomitant]
  10. PERCOCET [Concomitant]

REACTIONS (7)
  - PAIN [None]
  - INJURY [None]
  - PULMONARY EMBOLISM [None]
  - DEEP VEIN THROMBOSIS [None]
  - ANXIETY [None]
  - GENERAL PHYSICAL HEALTH DETERIORATION [None]
  - EMOTIONAL DISTRESS [None]
